FAERS Safety Report 9556065 (Version 1)
Quarter: 2013Q3

REPORT INFORMATION
  Report Type: Spontaneous
  Country: US (occurrence: None)
  Receive Date: 20130807
  Receipt Date: 20130807
  Transmission Date: 20140515
  Serious: Yes (Other)
  Sender: FDA-Public Use
  Company Number: AUR-APL-2013-04491

PATIENT
  Age: 44 Year
  Sex: Female
  Weight: 70.29 kg

DRUGS (1)
  1. VENLAFAXINE [Suspect]
     Indication: DEPRESSION

REACTIONS (2)
  - Amnesia [None]
  - Dizziness [None]
